FAERS Safety Report 20923601 (Version 1)
Quarter: 2022Q2

REPORT INFORMATION
  Report Type: Spontaneous
  Country: US (occurrence: None)
  Receive Date: 20220606
  Receipt Date: 20220606
  Transmission Date: 20220720
  Serious: Yes (Hospitalization)
  Sender: FDA-Public Use
  Company Number: None

PATIENT
  Age: 70 Year
  Sex: Male
  Weight: 80 kg

DRUGS (2)
  1. CYCLOPHOSPHAMIDE [Suspect]
     Active Substance: CYCLOPHOSPHAMIDE
     Indication: Diffuse large B-cell lymphoma
     Dosage: FREQUENCY : 3 TIMES A DAY;?
     Route: 042
     Dates: start: 20220303, end: 20220303
  2. FLUDARABINE [Suspect]
     Active Substance: FLUDARABINE PHOSPHATE
     Dosage: DOSAGE: 47.5 MG?FREQUENCY: 3X, IV
     Route: 042
     Dates: start: 20220303

REACTIONS (6)
  - Musculoskeletal chest pain [None]
  - Ureterolithiasis [None]
  - Ureteric obstruction [None]
  - Intestinal mass [None]
  - Abdominal pain [None]
  - Disease progression [None]

NARRATIVE: CASE EVENT DATE: 20220526
